FAERS Safety Report 12065733 (Version 1)
Quarter: 2016Q1

REPORT INFORMATION
  Report Type: Spontaneous
  Country: US (occurrence: US)
  Receive Date: 20160210
  Receipt Date: 20160210
  Transmission Date: 20160526
  Serious: No
  Sender: FDA-Public Use
  Company Number: US-ALLERGAN-1522230US

PATIENT
  Sex: Female

DRUGS (7)
  1. TRAMADOL. [Concomitant]
     Active Substance: TRAMADOL
     Indication: MIGRAINE
  2. SINGULAIR [Concomitant]
     Active Substance: MONTELUKAST SODIUM
     Indication: CHRONIC OBSTRUCTIVE PULMONARY DISEASE
  3. MELOXICAM. [Concomitant]
     Active Substance: MELOXICAM
     Indication: ARTHRITIS
  4. COMPAZINE [Concomitant]
     Active Substance: PROCHLORPERAZINE MALEATE
     Indication: NAUSEA
  5. BOTOX [Suspect]
     Active Substance: ONABOTULINUMTOXINA
     Indication: MIGRAINE
     Dosage: UNK UNK, SINGLE
     Route: 030
     Dates: start: 20151016, end: 20151016
  6. NORTRYPTALINE [Concomitant]
     Indication: MIGRAINE
  7. GABAPENTIN. [Concomitant]
     Active Substance: GABAPENTIN
     Indication: PAIN

REACTIONS (7)
  - Hyperacusis [Not Recovered/Not Resolved]
  - Nausea [Not Recovered/Not Resolved]
  - Headache [Not Recovered/Not Resolved]
  - Sinus headache [Unknown]
  - Therapeutic response decreased [Unknown]
  - Photophobia [Not Recovered/Not Resolved]
  - Neck pain [Unknown]
